FAERS Safety Report 17480346 (Version 8)
Quarter: 2020Q4

REPORT INFORMATION
  Report Type: Report from Study
  Country: US (occurrence: US)
  Receive Date: 20200228
  Receipt Date: 20201027
  Transmission Date: 20210113
  Serious: Yes (Other)
  Sender: FDA-Public Use
  Company Number: NVSC2020US057734

PATIENT
  Age: 45 Year
  Sex: Female
  Weight: 68.03 kg

DRUGS (6)
  1. GILENYA [Suspect]
     Active Substance: FINGOLIMOD HYDROCHLORIDE
     Dosage: 0.5 MG, QD
     Route: 048
  2. GILENYA [Suspect]
     Active Substance: FINGOLIMOD HYDROCHLORIDE
     Indication: MULTIPLE SCLEROSIS RELAPSE
     Dosage: UNK, QD
     Route: 048
  3. GILENYA [Suspect]
     Active Substance: FINGOLIMOD HYDROCHLORIDE
     Dosage: 0.5 MG, QD
     Route: 048
  4. GILENYA [Suspect]
     Active Substance: FINGOLIMOD HYDROCHLORIDE
     Indication: RELAPSING-REMITTING MULTIPLE SCLEROSIS
     Dosage: 0.5 MG, QD
     Route: 048
     Dates: start: 20190219
  5. GILENYA [Suspect]
     Active Substance: FINGOLIMOD HYDROCHLORIDE
     Indication: MULTIPLE SCLEROSIS
     Dosage: 0.5 MG, QD
     Route: 048
  6. GILENYA [Suspect]
     Active Substance: FINGOLIMOD HYDROCHLORIDE
     Dosage: 0.5 MG, QD
     Route: 048
     Dates: start: 20200219

REACTIONS (15)
  - Visual impairment [Unknown]
  - Contusion [Unknown]
  - Pain in extremity [Unknown]
  - Stress [Unknown]
  - Vomiting [Unknown]
  - Muscular weakness [Unknown]
  - Balance disorder [Unknown]
  - Fall [Unknown]
  - Limb injury [Unknown]
  - Diarrhoea [Unknown]
  - Arthralgia [Unknown]
  - Malaise [Unknown]
  - Amnesia [Unknown]
  - Enuresis [Unknown]
  - Skin discolouration [Unknown]

NARRATIVE: CASE EVENT DATE: 20200219
